FAERS Safety Report 7777084-6 (Version None)
Quarter: 2011Q3

REPORT INFORMATION
  Report Type: 
  Country: None (occurrence: None)
  Receive Date: 20110923
  Receipt Date: 20110923
  Transmission Date: 20111222
  Serious: No
  Sender: FDA-Public Use
  Company Number: None

PATIENT
  Sex: Male
  Weight: 118.2 kg

DRUGS (1)
  1. CARTIA XT [Suspect]
     Indication: ANGINA PECTORIS
     Dosage: 120MG DAILY PO
     Route: 048
     Dates: start: 20110829, end: 20110919

REACTIONS (1)
  - ANGINA PECTORIS [None]
